FAERS Safety Report 8289288-7 (Version None)
Quarter: 2012Q2

REPORT INFORMATION
  Report Type: 
  Country: None (occurrence: None)
  Receive Date: 20120417
  Receipt Date: 20120412
  Transmission Date: 20120825
  Serious: Yes (Other)
  Sender: FDA-Public Use
  Company Number: PHHY2012CN031210

PATIENT
  Sex: Female

DRUGS (2)
  1. ZOMETA [Suspect]
     Indication: METASTASES TO BONE
     Dosage: UNK
  2. ZOLEDRONOC ACID [Suspect]
     Indication: METASTASES TO BONE
     Dosage: UNK

REACTIONS (2)
  - BONE LESION [None]
  - OSTEONECROSIS OF JAW [None]
